FAERS Safety Report 24412504 (Version 2)
Quarter: 2024Q4

REPORT INFORMATION
  Report Type: Spontaneous
  Country: US (occurrence: US)
  Receive Date: 20241008
  Receipt Date: 20241022
  Transmission Date: 20250115
  Serious: Yes (Other)
  Sender: BAUSCH AND LOMB
  Company Number: US-BAUSCH-BL-2024-014983

PATIENT
  Sex: Male

DRUGS (1)
  1. XIFAXAN [Suspect]
     Active Substance: RIFAXIMIN
     Indication: Product used for unknown indication
     Dosage: 3 TABLETS A DAY FOR THE FIRST 10 DAYS OF EACH MONTH FOR THE PAST 9 YEARS
     Route: 065
     Dates: start: 2015

REACTIONS (3)
  - Transplant [Unknown]
  - Product availability issue [Unknown]
  - Therapy interrupted [Unknown]
